FAERS Safety Report 4817409-4 (Version None)
Quarter: 2005Q4

REPORT INFORMATION
  Report Type: 
  Country: None (occurrence: None)
  Receive Date: 20051031
  Receipt Date: 20051021
  Transmission Date: 20060501
  Serious: Yes (Life-Threatening, Hospitalization)
  Sender: FDA-Public Use
  Company Number: 2005145746

PATIENT
  Age: 14 Year
  Sex: Female
  Weight: 53.7 kg

DRUGS (1)
  1. GENOTROPIN [Suspect]
     Indication: HYPOPITUITARISM
     Dosage: 1.8 MG (DAILY)
     Dates: start: 20021122

REACTIONS (1)
  - PAPILLARY THYROID CANCER [None]
